FAERS Safety Report 23688439 (Version 1)
Quarter: 2024Q1

REPORT INFORMATION
  Report Type: Spontaneous
  Country: US (occurrence: None)
  Receive Date: 20240329
  Receipt Date: 20240329
  Transmission Date: 20240410
  Serious: No
  Sender: FDA-Public Use
  Company Number: None

PATIENT
  Age: 74 Year
  Sex: Female
  Weight: 59.85 kg

DRUGS (3)
  1. BRIMONIDINE TARTRATE [Suspect]
     Active Substance: BRIMONIDINE TARTRATE
     Indication: Glaucoma
     Dosage: FREQUENCY : TWICE A DAY;?
     Route: 047
  2. Timolol drops 2x day. [Concomitant]
  3. Acyclovir 400mg. 2x day [Concomitant]

REACTIONS (8)
  - Retinal neovascularisation [None]
  - Eye swelling [None]
  - Vision blurred [None]
  - Metamorphopsia [None]
  - Corneal scar [None]
  - Keratoplasty [None]
  - Photophobia [None]
  - Therapy cessation [None]

NARRATIVE: CASE EVENT DATE: 20220411
